FAERS Safety Report 5718509-7 (Version None)
Quarter: 2008Q2

REPORT INFORMATION
  Report Type: 
  Country: None (occurrence: None)
  Receive Date: 20080425
  Receipt Date: 20080416
  Transmission Date: 20081010
  Serious: Yes (Other)
  Sender: FDA-Public Use
  Company Number: BR-PFIZER INC-2007067026

PATIENT
  Sex: Male

DRUGS (3)
  1. LIPITOR [Suspect]
     Indication: ARTERIAL DISORDER
     Route: 048
     Dates: start: 20070601, end: 20070101
  2. LIPITOR [Suspect]
     Indication: BLOOD CHOLESTEROL INCREASED
  3. ATENOLOL [Concomitant]
     Indication: BLOOD PRESSURE

REACTIONS (8)
  - CHROMATURIA [None]
  - EATING DISORDER [None]
  - MYALGIA [None]
  - PAIN [None]
  - POLLAKIURIA [None]
  - POOR QUALITY SLEEP [None]
  - WEIGHT DECREASED [None]
  - WRONG TECHNIQUE IN DRUG USAGE PROCESS [None]
